FAERS Safety Report 4501485-2 (Version None)
Quarter: 2004Q4

REPORT INFORMATION
  Report Type: 
  Country: None (occurrence: None)
  Receive Date: 20041115
  Receipt Date: 20041105
  Transmission Date: 20050328
  Serious: Yes (Disabling)
  Sender: FDA-Public Use
  Company Number: US-MERCK-0411USA01085

PATIENT
  Age: 49 Year
  Sex: Male

DRUGS (2)
  1. VIOXX [Suspect]
     Indication: SPONDYLITIS
     Route: 048
     Dates: start: 20030401, end: 20040701
  2. ZANAFLEX [Concomitant]
     Route: 065

REACTIONS (3)
  - ARTHRALGIA [None]
  - CHEST PAIN [None]
  - RENAL PAIN [None]
